FAERS Safety Report 10952272 (Version 1)
Quarter: 2015Q1

REPORT INFORMATION
  Report Type: Spontaneous
  Country: US (occurrence: None)
  Receive Date: 20150324
  Receipt Date: 20150324
  Transmission Date: 20150721
  Serious: Yes (Other)
  Sender: FDA-Public Use
  Company Number: None

PATIENT
  Age: 61 Year
  Sex: Female
  Weight: 84.37 kg

DRUGS (6)
  1. CENTRUM SILVER [Concomitant]
     Active Substance: VITAMINS
  2. BUPROPION [Concomitant]
     Active Substance: BUPROPION
  3. LEVOTHYROXIJN [Concomitant]
  4. ACTONEL [Suspect]
     Active Substance: RISEDRONATE SODIUM
     Indication: OSTEOPENIA
     Dosage: TAKEN BY MOUTH
     Dates: end: 20150314
  5. ATORVASTATIN [Concomitant]
     Active Substance: ATORVASTATIN
  6. ASPIRIN. [Concomitant]
     Active Substance: ASPIRIN

REACTIONS (4)
  - Arthralgia [None]
  - Sleep disorder due to a general medical condition [None]
  - Musculoskeletal pain [None]
  - Impaired work ability [None]

NARRATIVE: CASE EVENT DATE: 20150309
